FAERS Safety Report 5886844-8 (Version None)
Quarter: 2008Q3

REPORT INFORMATION
  Report Type: 
  Country: None (occurrence: None)
  Receive Date: 20080917
  Receipt Date: 20080908
  Transmission Date: 20090109
  Serious: Yes (Death)
  Sender: FDA-Public Use
  Company Number: JP-SANOFI-SYNTHELABO-A01200811121

PATIENT
  Age: 56 Year
  Sex: Male

DRUGS (7)
  1. ZOLOFT [Suspect]
     Indication: DRUG USE FOR UNKNOWN INDICATION
     Dosage: 4 DF
     Route: 048
  2. DEPAS [Suspect]
     Indication: DRUG USE FOR UNKNOWN INDICATION
     Dosage: 2 DF
     Route: 048
  3. TETRAMIDE [Suspect]
     Indication: DRUG USE FOR UNKNOWN INDICATION
     Dosage: 6 DF
     Route: 048
  4. TOLEDOMIN [Suspect]
     Indication: DRUG USE FOR UNKNOWN INDICATION
     Dosage: 8 DF
     Route: 048
  5. SOLANAX [Suspect]
     Indication: DRUG USE FOR UNKNOWN INDICATION
     Dosage: 6 DF
     Route: 048
  6. HARNAL [Suspect]
     Indication: DRUG USE FOR UNKNOWN INDICATION
     Route: 048
  7. MYSLEE [Suspect]
     Indication: INSOMNIA
     Route: 048

REACTIONS (1)
  - HEPATITIS FULMINANT [None]
